FAERS Safety Report 7646532-4 (Version None)
Quarter: 2011Q3

REPORT INFORMATION
  Report Type: 
  Country: None (occurrence: None)
  Receive Date: 20110725
  Receipt Date: 20110707
  Transmission Date: 20111222
  Serious: Yes (Other)
  Sender: FDA-Public Use
  Company Number: JHP201100355

PATIENT
  Age: 31 Year
  Sex: Male

DRUGS (11)
  1. GLYCOPYRROLATE [Concomitant]
  2. SEVOFLURANE [Concomitant]
  3. PROPOFOL [Concomitant]
  4. FENTANYL [Concomitant]
  5. NEOSTIGMINE (NEOSTIGMINE) [Concomitant]
  6. BICARBONATE (SODIUM BICARBONATE) [Concomitant]
  7. MIDAZOLAM HYDROCHLORIDE [Concomitant]
  8. SUCCINYLCHOLINE CHLORIDE [Concomitant]
  9. DANTROLENE SODIUM [Suspect]
     Indication: HYPERTHERMIA MALIGNANT
     Dosage: 1860 MG, TOTAL, INTRAVENOUS
     Route: 042
  10. ROCURONIUM BROMIDE [Concomitant]
  11. LASIX [Concomitant]

REACTIONS (1)
  - RESPIRATORY FAILURE [None]
